FAERS Safety Report 7654504-9 (Version None)
Quarter: 2011Q3

REPORT INFORMATION
  Report Type: 
  Country: None (occurrence: None)
  Receive Date: 20110803
  Receipt Date: 20110725
  Transmission Date: 20111222
  Serious: Yes (Other)
  Sender: FDA-Public Use
  Company Number: BR-GENENTECH-277283

PATIENT
  Sex: Female

DRUGS (9)
  1. DIPYRONE [Concomitant]
     Indication: PRODUCT USED FOR UNKNOWN INDICATION
  2. PAMELOR [Concomitant]
     Indication: PRODUCT USED FOR UNKNOWN INDICATION
     Dosage: UNK
  3. MABTHERA [Suspect]
     Dosage: 1000 MG, UNK
     Route: 042
     Dates: start: 20071001, end: 20071001
  4. PREDNISONE [Concomitant]
     Indication: PRODUCT USED FOR UNKNOWN INDICATION
     Dosage: 5 MG, UNK
  5. OMEPRAZOLE [Concomitant]
     Indication: PRODUCT USED FOR UNKNOWN INDICATION
     Dosage: 40 MG, UNK
  6. MEDICATION (UNK INGREDIENT) [Concomitant]
     Indication: PRODUCT USED FOR UNKNOWN INDICATION
  7. MABTHERA [Suspect]
     Indication: RHEUMATOID ARTHRITIS
     Dosage: UNK
     Route: 042
     Dates: start: 20080916, end: 20081006
  8. TANDRILAX [Concomitant]
     Indication: PAIN
  9. CLONAZEPAM [Concomitant]
     Indication: PRODUCT USED FOR UNKNOWN INDICATION

REACTIONS (7)
  - CATARACT [None]
  - PAIN IN EXTREMITY [None]
  - ALOPECIA [None]
  - COORDINATION ABNORMAL [None]
  - GASTRITIS [None]
  - HYPERTENSION [None]
  - RHEUMATOID LUNG [None]
